FAERS Safety Report 4951541-X (Version None)
Quarter: 2006Q1

REPORT INFORMATION
  Report Type: 
  Country: None (occurrence: None)
  Receive Date: 20060317
  Receipt Date: 20060307
  Transmission Date: 20060701
  Serious: Yes (Other)
  Sender: FDA-Public Use
  Company Number: 222824

PATIENT
  Age: 12 Year
  Sex: 0

DRUGS (1)
  1. XOLAIR [Suspect]

REACTIONS (2)
  - CONDITION AGGRAVATED [None]
  - HEPATIC ENZYME INCREASED [None]
